FAERS Safety Report 6997650-5 (Version None)
Quarter: 2010Q3

REPORT INFORMATION
  Report Type: 
  Country: None (occurrence: None)
  Receive Date: 20100918
  Receipt Date: 20091105
  Transmission Date: 20110219
  Serious: No
  Sender: FDA-Public Use
  Company Number: US-WYE-H12084509

PATIENT
  Age: 57 Year
  Sex: Female
  Weight: 68.1 kg

DRUGS (7)
  1. ADVIL COLD AND SINUS [Suspect]
     Indication: SINUS CONGESTION
     Route: 048
     Dates: start: 20091031
  2. ADVIL COLD AND SINUS [Suspect]
     Indication: HEADACHE
  3. NEURONTIN [Concomitant]
  4. TRAZODONE HCL [Concomitant]
  5. CYMBALTA [Concomitant]
  6. SOMA [Concomitant]
  7. REQUIP [Concomitant]

REACTIONS (1)
  - HYPOAESTHESIA [None]
